FAERS Safety Report 24610220 (Version 1)
Quarter: 2024Q4

REPORT INFORMATION
  Report Type: Spontaneous
  Country: HR (occurrence: HR)
  Receive Date: 20241112
  Receipt Date: 20241112
  Transmission Date: 20250115
  Serious: Yes (Hospitalization, Other)
  Sender: FRESENIUS KABI
  Company Number: HR-BRISTOL-MYERS SQUIBB COMPANY-2024-169100

PATIENT
  Age: 63 Year
  Sex: Female

DRUGS (6)
  1. PACLITAXEL [Suspect]
     Active Substance: PACLITAXEL
     Indication: Non-small cell lung cancer metastatic
     Dosage: FORM OF ADMINISTRATION: UNKNOWN
     Dates: end: 2024
  2. NIVOLUMAB [Suspect]
     Active Substance: NIVOLUMAB
     Indication: Non-small cell lung cancer metastatic
     Dosage: 5 DOSES?FOA: UNKNOWN
     Route: 042
  3. IPILIMUMAB [Suspect]
     Active Substance: IPILIMUMAB
     Indication: Non-small cell lung cancer metastatic
     Dosage: 3 DOSES?FOA: UNKNOWN
     Route: 042
  4. CARBOPLATIN [Concomitant]
     Active Substance: CARBOPLATIN
     Indication: Non-small cell lung cancer metastatic
     Dosage: FOA: UNKNOWN
     Dates: start: 2024
  5. PEMETREXED [Concomitant]
     Active Substance: PEMETREXED
     Indication: Non-small cell lung cancer metastatic
     Dosage: FOA: UNKNOWN
     Dates: start: 2024
  6. GEMCITABINE [Concomitant]
     Active Substance: GEMCITABINE
     Indication: Non-small cell lung cancer metastatic
     Dosage: MNOGEMCITABINE?FOA: UNKNOWN
     Dates: start: 2024

REACTIONS (6)
  - Urticaria [Unknown]
  - Pneumonia [Unknown]
  - Non-small cell lung cancer [Unknown]
  - Atelectasis [Unknown]
  - Central nervous system lesion [Unknown]
  - Pleural effusion [Unknown]

NARRATIVE: CASE EVENT DATE: 20240101
